FAERS Safety Report 13124948 (Version 3)
Quarter: 2017Q1

REPORT INFORMATION
  Report Type: Spontaneous
  Country: CA (occurrence: CA)
  Receive Date: 20170118
  Receipt Date: 20170310
  Transmission Date: 20170428
  Serious: Yes (Other)
  Sender: FDA-Public Use
  Company Number: CA-MALLINCKRODT-T201700105

PATIENT
  Age: 68 Year
  Sex: Male
  Weight: 91 kg

DRUGS (7)
  1. UVADEX [Suspect]
     Active Substance: METHOXSALEN
     Dosage: UNK
     Route: 057
     Dates: start: 20170217, end: 20170217
  2. PREDNISONE. [Concomitant]
     Active Substance: PREDNISONE
  3. UVADEX [Suspect]
     Active Substance: METHOXSALEN
     Indication: GRAFT VERSUS HOST DISEASE IN SKIN
     Dosage: UNK
     Route: 057
     Dates: start: 20161221, end: 20161221
  4. CELLCEPT [Concomitant]
     Active Substance: MYCOPHENOLATE MOFETIL\MYCOPHENOLATE MOFETIL HYDROCHLORIDE
  5. ACDA [Concomitant]
     Indication: ANTICOAGULANT THERAPY
  6. UVADEX [Suspect]
     Active Substance: METHOXSALEN
     Dosage: UNK
     Route: 057
     Dates: start: 20170215, end: 20170215
  7. TACROLIMUS. [Concomitant]
     Active Substance: TACROLIMUS

REACTIONS (3)
  - Injection site pain [Unknown]
  - Thrombosis [Unknown]
  - Thrombophlebitis superficial [Unknown]

NARRATIVE: CASE EVENT DATE: 20161229
